FAERS Safety Report 4471487-3 (Version None)
Quarter: 2004Q4

REPORT INFORMATION
  Report Type: 
  Country: None (occurrence: None)
  Receive Date: 20041006
  Receipt Date: 20040930
  Transmission Date: 20050328
  Serious: Yes (Death)
  Sender: FDA-Public Use
  Company Number: 2004AC00414

PATIENT
  Age: 24 Month
  Sex: Female

DRUGS (1)
  1. LIDOCAINE [Suspect]
     Indication: MOUTH ULCERATION
     Dosage: 100 ML

REACTIONS (9)
  - ACCIDENTAL EXPOSURE [None]
  - AREFLEXIA [None]
  - BRADYCARDIA [None]
  - CARDIAC ARREST [None]
  - CARDIO-RESPIRATORY ARREST [None]
  - CONVULSION [None]
  - HYPOTENSION [None]
  - OVERDOSE [None]
  - PUPIL FIXED [None]
